FAERS Safety Report 6148279-2 (Version None)
Quarter: 2009Q2

REPORT INFORMATION
  Report Type: 
  Country: None (occurrence: None)
  Receive Date: 20090408
  Receipt Date: 20090327
  Transmission Date: 20091009
  Serious: Yes (Hospitalization, Disabling)
  Sender: FDA-Public Use
  Company Number: AU-CELGENEUS-008-20785-09020898

PATIENT
  Sex: Male
  Weight: 90 kg

DRUGS (19)
  1. THALIDOMIDE [Suspect]
     Indication: MULTIPLE MYELOMA
     Route: 048
     Dates: start: 20080401
  2. METOPROLOL [Concomitant]
     Route: 065
  3. FRUSEMIDE [Concomitant]
     Indication: HYPERTENSION
     Route: 065
  4. SPARK [Concomitant]
     Indication: HYPERTENSION
     Route: 065
  5. HYDROCHLOROTHIAZIDE [Concomitant]
     Indication: HYPERTENSION
     Route: 065
  6. NULYTELY [Concomitant]
     Indication: CONSTIPATION
     Route: 065
  7. COLOXYL + SENNA [Concomitant]
     Indication: CONSTIPATION
     Route: 065
  8. PARACETAMOL [Concomitant]
     Indication: ANALGESIA
     Route: 065
  9. PERINDOPRIL ERBUMINE [Concomitant]
     Route: 065
  10. ASPIRIN [Concomitant]
     Route: 065
  11. DIAZEPAM [Concomitant]
     Indication: SCHIZOPHRENIA
     Route: 065
  12. NITRAZEPAM [Concomitant]
     Indication: SCHIZOPHRENIA
     Route: 065
  13. ATORVASTATIN [Concomitant]
     Indication: DYSLIPIDAEMIA
     Route: 065
  14. OMEPRAZOLE [Concomitant]
     Indication: GASTRITIS
     Route: 065
  15. CLOMIPRAMINE HCL [Concomitant]
     Indication: SCHIZOPHRENIA
     Route: 065
  16. CHLORPROMAZINE [Concomitant]
     Indication: SCHIZOPHRENIA
     Route: 065
  17. RISPERIDONE [Concomitant]
     Indication: SCHIZOPHRENIA
     Route: 065
  18. VALPROATE SODIUM [Concomitant]
     Indication: SCHIZOPHRENIA
     Route: 065
  19. VALPROATE SODIUM [Concomitant]
     Route: 065

REACTIONS (3)
  - ASTHENIA [None]
  - MULTIPLE MYELOMA [None]
  - SPINAL COMPRESSION FRACTURE [None]
